FAERS Safety Report 21525820 (Version 6)
Quarter: 2024Q2

REPORT INFORMATION
  Report Type: Report from Study
  Country: CO (occurrence: CO)
  Receive Date: 20221031
  Receipt Date: 20240628
  Transmission Date: 20240715
  Serious: Yes (Life-Threatening, Hospitalization, Other)
  Sender: FDA-Public Use
  Company Number: CO-ABBVIE-4181149

PATIENT
  Sex: Male
  Weight: 68 kg

DRUGS (7)
  1. VENCLEXTA [Suspect]
     Active Substance: VENETOCLAX
     Indication: Chronic lymphocytic leukaemia
     Dosage: FORM STRENGTH: 100 MG
     Route: 048
     Dates: end: 20240619
  2. VENCLEXTA [Suspect]
     Active Substance: VENETOCLAX
     Indication: Chronic lymphocytic leukaemia
     Dosage: FORM STRENGTH- 100 MG,
     Route: 048
     Dates: start: 20221019
  3. RITUXIMAB [Concomitant]
     Active Substance: RITUXIMAB
     Indication: Chronic lymphocytic leukaemia
     Dosage: UNKNOW
     Route: 042
     Dates: start: 2023, end: 2023
  4. RITUXIMAB [Concomitant]
     Active Substance: RITUXIMAB
     Indication: Chronic lymphocytic leukaemia
     Dosage: 6 CYCLES FRO 6 MONTHS
     Route: 042
     Dates: start: 2023, end: 20230523
  5. RITUXIMAB [Concomitant]
     Active Substance: RITUXIMAB
     Indication: Chronic lymphocytic leukaemia
     Dosage: UNKNOW
     Route: 042
     Dates: start: 202405, end: 202406
  6. BENDAMUSTINE [Concomitant]
     Active Substance: BENDAMUSTINE
     Indication: Chronic lymphocytic leukaemia
     Route: 042
     Dates: start: 202405, end: 202406
  7. ALLOPURINOL [Concomitant]
     Active Substance: ALLOPURINOL
     Indication: Product used for unknown indication
     Dosage: NOT REPORTED

REACTIONS (10)
  - Blood calcium increased [Recovering/Resolving]
  - Blood magnesium increased [Recovering/Resolving]
  - Blood creatinine increased [Recovering/Resolving]
  - Chronic lymphocytic leukaemia [Not Recovered/Not Resolved]
  - Ear infection bacterial [Recovered/Resolved]
  - Unevaluable event [Recovering/Resolving]
  - Infection [Recovered/Resolved]
  - Synovial cyst [Not Recovered/Not Resolved]
  - Immunodeficiency [Unknown]
  - Pneumonia bacterial [Recovered/Resolved]

NARRATIVE: CASE EVENT DATE: 20220101
